FAERS Safety Report 21050526 (Version 10)
Quarter: 2023Q2

REPORT INFORMATION
  Report Type: Report from Study
  Country: CO (occurrence: CO)
  Receive Date: 20220707
  Receipt Date: 20230406
  Transmission Date: 20230721
  Serious: Yes (Other)
  Sender: FDA-Public Use
  Company Number: CO-NOVARTISPH-NVSC2022CO079406

PATIENT
  Age: 34 Year
  Sex: Female
  Weight: 45 kg

DRUGS (6)
  1. COSENTYX [Suspect]
     Active Substance: SECUKINUMAB
     Indication: Ankylosing spondylitis
     Dosage: 150 MG, QMO (4 YEARS AGO)
     Route: 058
  2. COSENTYX [Suspect]
     Active Substance: SECUKINUMAB
     Dosage: UNK
     Route: 065
     Dates: start: 20220419
  3. COSENTYX [Suspect]
     Active Substance: SECUKINUMAB
     Dosage: 150 MG, QMO (UNK DATE IN APR AND UNK YEAR)
     Route: 058
  4. ESCITALOPRAM [Concomitant]
     Active Substance: ESCITALOPRAM OXALATE
     Indication: Sleep disorder
     Dosage: 10 MG, QD (1 YEAR AGO)
     Route: 048
  5. PREGABALIN [Concomitant]
     Active Substance: PREGABALIN
     Indication: Pain
     Dosage: 30 MG, QD
     Route: 048
     Dates: start: 202204
  6. QUETIAPINE [Concomitant]
     Active Substance: QUETIAPINE
     Indication: Sleep disorder
     Dosage: 25 MG, QD
     Route: 048
     Dates: start: 202204

REACTIONS (11)
  - Leukopenia [Unknown]
  - Hepatitis B [Unknown]
  - Nasal herpes [Not Recovered/Not Resolved]
  - Nasal disorder [Unknown]
  - Gait disturbance [Unknown]
  - Back pain [Unknown]
  - Oral disorder [Unknown]
  - Oral herpes [Recovered/Resolved]
  - Skin lesion [Unknown]
  - Pain [Not Recovered/Not Resolved]
  - Condition aggravated [Unknown]

NARRATIVE: CASE EVENT DATE: 20220401
